FAERS Safety Report 18987740 (Version 2)
Quarter: 2021Q2

REPORT INFORMATION
  Report Type: Report from Study
  Country: DE (occurrence: DE)
  Receive Date: 20210309
  Receipt Date: 20210602
  Transmission Date: 20210717
  Serious: Yes (Hospitalization)
  Sender: FDA-Public Use
  Company Number: NVSC2020DE204359

PATIENT
  Age: 57 Year
  Sex: Male
  Weight: 92 kg

DRUGS (23)
  1. COSENTYX [Suspect]
     Active Substance: SECUKINUMAB
     Dosage: 300 MG(ONCE)
     Route: 065
     Dates: start: 20191128, end: 20191128
  2. COSENTYX [Suspect]
     Active Substance: SECUKINUMAB
     Dosage: 300 MG(ONCE)
     Route: 065
     Dates: start: 20200813, end: 20200813
  3. PREDNISOLONE. [Concomitant]
     Active Substance: PREDNISOLONE
     Indication: ALVEOLITIS
     Dosage: 5 MG, QD
     Route: 048
     Dates: start: 201810
  4. ASPIRIN. [Concomitant]
     Active Substance: ASPIRIN
     Indication: ARTERIOSCLEROSIS
     Dosage: 100 MG, QD
     Route: 048
     Dates: start: 201809
  5. CALCIUM [Concomitant]
     Active Substance: CALCIUM
     Indication: OSTEOPENIA
     Dosage: 500 MG, QD
     Route: 048
     Dates: start: 20150115
  6. DICLOFENAC [Concomitant]
     Active Substance: DICLOFENAC
     Indication: PSORIATIC ARTHROPATHY
     Dosage: 50 MG (AS NEEDED)
     Route: 048
     Dates: start: 2015
  7. COSENTYX [Suspect]
     Active Substance: SECUKINUMAB
     Dosage: 300 MG(ONCE)
     Route: 065
     Dates: start: 20200130, end: 20200130
  8. COSENTYX [Suspect]
     Active Substance: SECUKINUMAB
     Dosage: 300 MG(ONCE)
     Route: 065
     Dates: start: 20200521, end: 20200521
  9. COSENTYX [Suspect]
     Active Substance: SECUKINUMAB
     Dosage: 300 MG(ONCE)
     Route: 065
     Dates: start: 20200618
  10. ALLOPURINOL. [Concomitant]
     Active Substance: ALLOPURINOL
     Indication: GOUT
     Dosage: 100 MG, QD
     Route: 048
     Dates: end: 20200504
  11. ATORVASTATIN [Concomitant]
     Active Substance: ATORVASTATIN
     Indication: ARTERIOSCLEROSIS CORONARY ARTERY
     Dosage: 10 MG, QD
     Route: 048
     Dates: start: 201809
  12. COSENTYX [Suspect]
     Active Substance: SECUKINUMAB
     Indication: PSORIATIC ARTHROPATHY
     Dosage: 300 MG (ONCE)
     Route: 065
     Dates: start: 20191107, end: 20191107
  13. COSENTYX [Suspect]
     Active Substance: SECUKINUMAB
     Dosage: 300 MG(ONCE)
     Route: 065
     Dates: start: 20191121, end: 20191121
  14. COSENTYX [Suspect]
     Active Substance: SECUKINUMAB
     Dosage: 300 MG(ONCE)
     Route: 065
     Dates: start: 20200102, end: 20200102
  15. COSENTYX [Suspect]
     Active Substance: SECUKINUMAB
     Dosage: 300 MG(ONCE)
     Route: 065
     Dates: start: 20200227, end: 20200227
  16. COSENTYX [Suspect]
     Active Substance: SECUKINUMAB
     Dosage: 300 MG(ONCE)
     Route: 065
     Dates: start: 20200326, end: 20200326
  17. COSENTYX [Suspect]
     Active Substance: SECUKINUMAB
     Dosage: 300 MG(ONCE)
     Route: 065
     Dates: start: 20200423, end: 20200423
  18. COSENTYX [Suspect]
     Active Substance: SECUKINUMAB
     Dosage: 300 MG(ONCE)
     Route: 065
     Dates: start: 20200716, end: 20200716
  19. COSENTYX [Suspect]
     Active Substance: SECUKINUMAB
     Dosage: 300 MG(ONCE)
     Route: 065
     Dates: start: 20200910
  20. COSENTYX [Suspect]
     Active Substance: SECUKINUMAB
     Dosage: 300 MG(ONCE)
     Route: 065
     Dates: start: 20201008, end: 20201008
  21. MOMEGALEN [Concomitant]
     Active Substance: MOMETASONE FUROATE
     Indication: PSORIATIC ARTHROPATHY
     Dosage: UNK, PRN
     Route: 061
  22. COSENTYX [Suspect]
     Active Substance: SECUKINUMAB
     Dosage: 300 MG(ONCE)
     Route: 065
     Dates: start: 20191114, end: 20191114
  23. COSENTYX [Suspect]
     Active Substance: SECUKINUMAB
     Dosage: 300 MG(ONCE)
     Route: 065
     Dates: start: 20191205, end: 20191205

REACTIONS (3)
  - Dyspnoea exertional [Recovered/Resolved]
  - Interstitial lung disease [Recovered/Resolved]
  - Aortic dilatation [Recovered/Resolved]

NARRATIVE: CASE EVENT DATE: 20200504
